FAERS Safety Report 8348022 (Version 2)
Quarter: 2013Q2

REPORT INFORMATION
  Report Type: Spontaneous
  Country: US (occurrence: None)
  Receive Date: 20111219
  Receipt Date: 20120524
  Transmission Date: 20140414
  Serious: Yes (Life-Threatening, Other)
  Sender: FDA-Public Use
  Company Number: WAES 1110USA00804

PATIENT
  Age: 68 Year
  Sex: Female
  Weight: 59.88 kg

DRUGS (3)
  1. JANUVIA [Suspect]
     Indication: TYPE 2 DIABETES MELLITUS
     Dosage: /PO
     Route: 048
     Dates: start: 20110616
  2. ACARBOSE [Concomitant]
  3. FERROUS GLUCONATE [Concomitant]

REACTIONS (2)
  - Blood glucose increased [None]
  - Pancreatitis acute [None]
